FAERS Safety Report 26107717 (Version 2)
Quarter: 2025Q4

REPORT INFORMATION
  Report Type: Spontaneous
  Country: US (occurrence: US)
  Receive Date: 20251201
  Receipt Date: 20251226
  Transmission Date: 20260117
  Serious: Yes (Other)
  Sender: BAYER HEALTHCARE PHARMACEUTICALS INC.
  Company Number: US-BAYER-2025A157174

PATIENT
  Age: 45 Year
  Sex: Male

DRUGS (6)
  1. KOVALTRY [Suspect]
     Active Substance: ANTIHEMOPHILIC FACTOR, HUMAN RECOMBINANT
     Indication: Haemorrhage
     Dosage: KOVALTRY 750/3164 IU: INFUSE~4000 UNITS
     Route: 042
  2. KOVALTRY [Suspect]
     Active Substance: ANTIHEMOPHILIC FACTOR, HUMAN RECOMBINANT
     Indication: Haemorrhage
     Dosage: 1 DF, ONCE
     Route: 042
     Dates: start: 20251109, end: 20251109
  3. KOVALTRY [Suspect]
     Active Substance: ANTIHEMOPHILIC FACTOR, HUMAN RECOMBINANT
     Indication: Haemorrhage
     Dosage: 1 DF, ONCE
     Route: 042
     Dates: start: 20251110, end: 20251110
  4. KOVALTRY [Suspect]
     Active Substance: ANTIHEMOPHILIC FACTOR, HUMAN RECOMBINANT
     Indication: Haemorrhage
     Dosage: 1 DF, ONCE
     Route: 042
     Dates: start: 20251111, end: 20251111
  5. KOVALTRY [Suspect]
     Active Substance: ANTIHEMOPHILIC FACTOR, HUMAN RECOMBINANT
     Indication: Haemorrhage
     Dosage: KOVALTRY 750/2956 UNITS INFUSE: 4000 UNITS (+/- 10%) THREE TIMES A WEEK AND FREQUENCY  EVERY 24 HOUR
  6. KOVALTRY [Suspect]
     Active Substance: ANTIHEMOPHILIC FACTOR, HUMAN RECOMBINANT
     Indication: Haemorrhage
     Dosage: 4 DOSED OF KOVALTRY USED
     Dates: start: 20251215

REACTIONS (4)
  - Haemarthrosis [Recovered/Resolved]
  - Haemarthrosis [Unknown]
  - Fall [Unknown]
  - Joint injury [Unknown]

NARRATIVE: CASE EVENT DATE: 20251109
